FAERS Safety Report 10970191 (Version 1)
Quarter: 2015Q1

REPORT INFORMATION
  Report Type: Spontaneous
  Country: IT (occurrence: IT)
  Receive Date: 20150331
  Receipt Date: 20150331
  Transmission Date: 20150721
  Serious: Yes (Other)
  Sender: FDA-Public Use
  Company Number: IT-EMD SERONO-8017600

PATIENT
  Age: 39 Year
  Sex: Female

DRUGS (6)
  1. GONAL-F [Suspect]
     Active Substance: FOLLITROPIN
  2. GONAL-F [Suspect]
     Active Substance: FOLLITROPIN
  3. GONAL-F [Suspect]
     Active Substance: FOLLITROPIN
     Indication: ASSISTED FERTILISATION
  4. SUPREFACT [Concomitant]
     Active Substance: BUSERELIN
     Indication: PRODUCT USED FOR UNKNOWN INDICATION
  5. GONASI HP [Concomitant]
     Indication: OVULATION INDUCTION
     Dosage: 5000 (UNSPECIFIED UNITS)
  6. GONAL-F [Suspect]
     Active Substance: FOLLITROPIN

REACTIONS (3)
  - Ovulation delayed [Unknown]
  - Blood oestrogen increased [Unknown]
  - Drug ineffective [Unknown]
